FAERS Safety Report 5206800-2 (Version None)
Quarter: 2006Q4

REPORT INFORMATION
  Report Type: 
  Country: None (occurrence: None)
  Receive Date: 20061026
  Receipt Date: 20060912
  Transmission Date: 20070319
  Serious: No
  Sender: FDA-Public Use
  Company Number: 2006111639

PATIENT
  Sex: Male

DRUGS (1)
  1. LYRICA [Suspect]
     Indication: NEUROPATHY
     Dates: start: 20060101

REACTIONS (4)
  - SOMNOLENCE [None]
  - STOMACH DISCOMFORT [None]
  - TREMOR [None]
  - WEIGHT INCREASED [None]
